FAERS Safety Report 6340235-4 (Version None)
Quarter: 2009Q3

REPORT INFORMATION
  Report Type: 
  Country: None (occurrence: None)
  Receive Date: 20090902
  Receipt Date: 20090824
  Transmission Date: 20100115
  Serious: Yes (Hospitalization, Other)
  Sender: FDA-Public Use
  Company Number: JPI-P-008380

PATIENT
  Age: 41 Year
  Sex: Male
  Weight: 95.2554 kg

DRUGS (7)
  1. XYREM          (500 MG/ML) (SODIUM OXYBATE) [Suspect]
     Indication: INSOMNIA
     Dosage: 4 GM (2 GM, 2 IN 1 D), ORAL; 6 GM (3 GM, 2 IN 1 D), ORAL
     Route: 048
     Dates: start: 20090501, end: 20090706
  2. XYREM          (500 MG/ML) (SODIUM OXYBATE) [Suspect]
     Indication: INSOMNIA
     Dosage: 4 GM (2 GM, 2 IN 1 D), ORAL; 6 GM (3 GM, 2 IN 1 D), ORAL
     Route: 048
     Dates: start: 20090707
  3. FLURAZEPAM [Suspect]
     Dosage: 15 MG, ORAL
     Route: 048
     Dates: start: 20090823
  4. MULTI-VITAMIN [Concomitant]
  5. FISH OIL [Concomitant]
  6. MULTI-VITAMIN [Concomitant]
  7. FISH OIL [Concomitant]

REACTIONS (14)
  - ANXIETY [None]
  - CHEST PAIN [None]
  - COLD SWEAT [None]
  - CONDITION AGGRAVATED [None]
  - DYSPNOEA [None]
  - ELECTROCARDIOGRAM ST SEGMENT ABNORMAL [None]
  - HYPERHIDROSIS [None]
  - HYPOAESTHESIA [None]
  - INITIAL INSOMNIA [None]
  - MALAISE [None]
  - PARAESTHESIA [None]
  - STRESS [None]
  - THROAT TIGHTNESS [None]
  - TREATMENT NONCOMPLIANCE [None]
